FAERS Safety Report 20534059 (Version 1)
Quarter: 2022Q1

REPORT INFORMATION
  Report Type: Spontaneous
  Country: None (occurrence: FR)
  Receive Date: 20220301
  Receipt Date: 20220301
  Transmission Date: 20220424
  Serious: Yes (Disabling)
  Sender: FDA-Public Use
  Company Number: FR-AFSSAPS-AVMP20220061

PATIENT
  Age: 23 Year
  Sex: Male

DRUGS (1)
  1. NITROUS OXIDE [Suspect]
     Active Substance: NITROUS OXIDE
     Indication: Product used for unknown indication
     Route: 055

REACTIONS (4)
  - Polyneuropathy [Recovering/Resolving]
  - Hypoaesthesia [Recovering/Resolving]
  - Ataxia [Recovering/Resolving]
  - Subacute combined cord degeneration [Unknown]

NARRATIVE: CASE EVENT DATE: 20210805
